FAERS Safety Report 15135431 (Version 2)
Quarter: 2018Q3

REPORT INFORMATION
  Report Type: Spontaneous
  Country: US (occurrence: US)
  Receive Date: 20180712
  Receipt Date: 20180907
  Transmission Date: 20181010
  Serious: Yes (Death, Other)
  Sender: FDA-Public Use
  Company Number: US-BRISTOL-MYERS SQUIBB COMPANY-BMS-2018-065396

PATIENT
  Sex: Male

DRUGS (2)
  1. OPDIVO [Suspect]
     Active Substance: NIVOLUMAB
     Indication: MALIGNANT NEOPLASM OF CHOROID
     Dosage: 86 MG, UNK
     Route: 042
     Dates: start: 20180618, end: 20180618
  2. YERVOY [Suspect]
     Active Substance: IPILIMUMAB
     Indication: MALIGNANT NEOPLASM OF CHOROID
     Dosage: 259 MG, UNK
     Route: 042
     Dates: start: 20180618, end: 20180618

REACTIONS (2)
  - Product use in unapproved indication [Unknown]
  - Death [Fatal]
